FAERS Safety Report 7292880-X (Version None)
Quarter: 2011Q1

REPORT INFORMATION
  Report Type: 
  Country: None (occurrence: None)
  Receive Date: 20110203
  Receipt Date: 20090619
  Transmission Date: 20110831
  Serious: No
  Sender: FDA-Public Use
  Company Number: 2009-00071

PATIENT
  Age: 25 Year
  Sex: Female
  Weight: 98.8842 kg

DRUGS (1)
  1. ZICAM COLD REMEDY GEL SWABS [Suspect]
     Dosage: QID X 4 DAYS
     Dates: start: 20090515, end: 20090519

REACTIONS (3)
  - ANOSMIA [None]
  - NASAL DISCOMFORT [None]
  - APPLICATION SITE PAIN [None]
